FAERS Safety Report 24607071 (Version 1)
Quarter: 2024Q4

REPORT INFORMATION
  Report Type: Spontaneous
  Country: US (occurrence: None)
  Receive Date: 20241108
  Receipt Date: 20241108
  Transmission Date: 20250115
  Serious: No
  Sender: Public
  Company Number: None

PATIENT
  Age: 68 Year
  Sex: Male

DRUGS (2)
  1. DOXAZOSIN MESYLATE [Suspect]
     Active Substance: DOXAZOSIN MESYLATE
     Dosage: 4.00 MG DAILY ORAL
     Route: 048
     Dates: end: 20240720
  2. METOPROLOL TARTRATE [Suspect]
     Active Substance: METOPROLOL TARTRATE
     Dosage: FREQUENCY : DAILY;?
     Route: 048

REACTIONS (1)
  - Hypotension [None]

NARRATIVE: CASE EVENT DATE: 20240720
